FAERS Safety Report 4797454-8 (Version None)
Quarter: 2005Q4

REPORT INFORMATION
  Report Type: 
  Country: None (occurrence: None)
  Receive Date: 20051013
  Receipt Date: 20050922
  Transmission Date: 20060501
  Serious: Yes (Hospitalization)
  Sender: FDA-Public Use
  Company Number: US-NOVOPROD-247167

PATIENT
  Age: 40 Year
  Sex: Male
  Weight: 100 kg

DRUGS (4)
  1. NOVOMIX 30 FLEXPEN [Suspect]
     Indication: INSULIN-REQUIRING TYPE II DIABETES MELLITUS
     Dosage: 30 U, QD
     Route: 058
     Dates: start: 20050921
  2. NOVOMIX 30 FLEXPEN [Suspect]
     Dosage: 30 U, QD
     Route: 058
     Dates: start: 20050916, end: 20050919
  3. AUGMENTIN [Concomitant]
     Indication: FOLLICULITIS
     Dosage: 2 G, BID
     Route: 048
     Dates: start: 20050916, end: 20050925
  4. ZYRTEC [Concomitant]
     Dosage: 10 MG, QD
     Route: 048
     Dates: start: 20050916

REACTIONS (3)
  - ELECTROLYTE IMBALANCE [None]
  - HYPERGLYCAEMIA [None]
  - HYPOKALAEMIA [None]
